FAERS Safety Report 6208105-X (Version None)
Quarter: 2009Q2

REPORT INFORMATION
  Report Type: 
  Country: None (occurrence: None)
  Receive Date: 20090529
  Receipt Date: 20090520
  Transmission Date: 20091009
  Serious: Yes (Other)
  Sender: FDA-Public Use
  Company Number: GB-ABBOTT-09P-167-0574770-00

PATIENT
  Sex: Male

DRUGS (1)
  1. EPILIM SYRUP [Suspect]
     Indication: EPILEPSY
     Route: 048

REACTIONS (4)
  - DIARRHOEA [None]
  - DRUG INEFFECTIVE [None]
  - EPILEPSY [None]
  - MALABSORPTION [None]
